FAERS Safety Report 6052013-4 (Version None)
Quarter: 2009Q1

REPORT INFORMATION
  Report Type: 
  Country: None (occurrence: None)
  Receive Date: 20090122
  Receipt Date: 20090122
  Transmission Date: 20090719
  Serious: Yes (Hospitalization)
  Sender: FDA-Public Use
  Company Number: None

PATIENT
  Sex: Male
  Weight: 68.5 kg

DRUGS (2)
  1. AVASTIN [Suspect]
     Indication: NEUROENDOCRINE CARCINOMA
     Dosage: 15 MG/KG
     Dates: end: 20080611
  2. RAD001 [Suspect]
     Indication: NEUROENDOCRINE CARCINOMA
     Dosage: 10 MG
     Dates: end: 20080701

REACTIONS (1)
  - INTESTINAL OBSTRUCTION [None]
